FAERS Safety Report 5834166-3 (Version None)
Quarter: 2008Q3

REPORT INFORMATION
  Report Type: 
  Country: None (occurrence: None)
  Receive Date: 20080731
  Receipt Date: 20080728
  Transmission Date: 20090109
  Serious: Yes (Death)
  Sender: FDA-Public Use
  Company Number: 2008SP005825

PATIENT
  Age: 42 Year
  Sex: Male
  Weight: 119.9311 kg

DRUGS (18)
  1. PEG-INTRON [Suspect]
     Indication: HEPATITIS C
     Dosage: 150 MCG, QW, SC
     Route: 058
     Dates: start: 20071217, end: 20080101
  2. PEG-INTRON [Suspect]
     Indication: HEPATITIS C
     Dosage: 150 MCG, QW, SC
     Route: 058
     Dates: start: 20080101
  3. REBETOL [Suspect]
     Indication: HEPATITIS C
     Dosage: 1000 MG; QD;PO
     Route: 048
     Dates: start: 20071217
  4. ALPRAZOLAM [Suspect]
     Indication: ANXIETY
  5. COCAINE [Suspect]
     Indication: DRUG USE FOR UNKNOWN INDICATION
  6. METFORMIN HCL [Suspect]
  7. ASPIRIN [Concomitant]
  8. ATENOLOL [Concomitant]
  9. CITALOPRAM HYDROBROMIDE [Concomitant]
  10. GLIMEPIRIDE [Concomitant]
  11. HYDROCHLOROTHIAZIDE [Concomitant]
  12. LISINOPRIL [Concomitant]
  13. LOVASTATIN [Concomitant]
  14. MULTI-VITAMINS [Concomitant]
  15. QUETIAPINE [Concomitant]
  16. SILDENAFIL CITRATE [Suspect]
  17. ZOLPIDEM [Concomitant]
  18. TERAZOSIN HCL [Concomitant]

REACTIONS (24)
  - ACCIDENTAL DEATH [None]
  - AGGRESSION [None]
  - ANOXIC ENCEPHALOPATHY [None]
  - ARTERIOSCLEROSIS [None]
  - BLOOD GLUCOSE INCREASED [None]
  - BLOOD PH DECREASED [None]
  - CEREBRAL ISCHAEMIA [None]
  - DECREASED APPETITE [None]
  - DRUG ABUSE [None]
  - DRUG LEVEL ABOVE THERAPEUTIC [None]
  - DRY SKIN [None]
  - DYSPNOEA EXERTIONAL [None]
  - FATIGUE [None]
  - HYDROCEPHALUS [None]
  - HYPERTENSIVE HEART DISEASE [None]
  - HYPOTHERMIA [None]
  - INFLUENZA LIKE ILLNESS [None]
  - INJECTION SITE HAEMATOMA [None]
  - NEUTROPENIA [None]
  - RESPIRATORY ARREST [None]
  - RESPIRATORY FAILURE [None]
  - SLEEP APNOEA SYNDROME [None]
  - SPLENOMEGALY [None]
  - UNRESPONSIVE TO STIMULI [None]
